FAERS Safety Report 11794330 (Version 1)
Quarter: 2015Q4

REPORT INFORMATION
  Report Type: Spontaneous
  Country: FR (occurrence: None)
  Receive Date: 20151202
  Receipt Date: 20151202
  Transmission Date: 20160305
  Serious: Yes (Death, Life-Threatening, Congenital Anomaly, Other)
  Sender: FDA-Public Use
  Company Number: FR-MDT-ADR-2015-02262

PATIENT

DRUGS (2)
  1. BACLOFEN UNKNOWN [Suspect]
     Active Substance: BACLOFEN
     Dosage: 1 DF,QD TRANSPLACENTAL
  2. SERESTA (OXAZEPAM) [Suspect]
     Active Substance: OXAZEPAM
     Dosage: 10 MG,QD TRANSPLACENTAL

REACTIONS (6)
  - Brain injury [None]
  - Dysmorphism [None]
  - Central nervous system lesion [None]
  - Foetal alcohol syndrome [None]
  - Cerebral ischaemia [None]
  - Cerebral ventricle dilatation [None]
